FAERS Safety Report 11351812 (Version 1)
Quarter: 2015Q3

REPORT INFORMATION
  Report Type: Spontaneous
  Country: US (occurrence: US)
  Receive Date: 20150807
  Receipt Date: 20150807
  Transmission Date: 20151125
  Serious: No
  Sender: FDA-Public Use
  Company Number: US-JNJFOC-20150217996

PATIENT
  Sex: Female

DRUGS (2)
  1. WOMENS ROGAINE [Suspect]
     Active Substance: MINOXIDIL
     Indication: ALOPECIA
     Dosage: ABOUT HALF A CAPFUL, EVERY OTHER DAY
     Route: 061
     Dates: start: 201501
  2. WOMENS ROGAINE [Suspect]
     Active Substance: MINOXIDIL
     Indication: ALOPECIA
     Dosage: ABOUT HALF A CAPFUL, EVERY OTHER DAY
     Route: 061
     Dates: start: 201501

REACTIONS (3)
  - Inappropriate schedule of drug administration [Unknown]
  - Skin irritation [Recovered/Resolved]
  - Medication residue present [Unknown]
